FAERS Safety Report 9339888 (Version 2)
Quarter: 2013Q2

REPORT INFORMATION
  Report Type: Spontaneous
  Country: GB (occurrence: None)
  Receive Date: 20130605
  Receipt Date: 20130611
  Transmission Date: 20140414
  Serious: Yes (Other)
  Sender: FDA-Public Use
  Company Number: IMP_06715_2013

PATIENT
  Age: 37 Year
  Sex: Female

DRUGS (1)
  1. METFORMIN [Suspect]
     Indication: TYPE 2 DIABETES MELLITUS
     Dosage: (DF)

REACTIONS (6)
  - Convulsion [None]
  - Confusional state [None]
  - Cerebral atrophy [None]
  - Cerebellar atrophy [None]
  - Cerebral calcification [None]
  - MELAS syndrome [None]
